FAERS Safety Report 6198590-4 (Version None)
Quarter: 2009Q2

REPORT INFORMATION
  Report Type: 
  Country: None (occurrence: None)
  Receive Date: 20090521
  Receipt Date: 20090512
  Transmission Date: 20091009
  Serious: Yes (Other)
  Sender: FDA-Public Use
  Company Number: US-JNJCH-2009013180

PATIENT
  Age: 56 Year
  Sex: Female
  Weight: 63.5 kg

DRUGS (1)
  1. NEOSPORIN PLUS MAXIMUM STRENGTH [Suspect]
     Indication: WOUND
     Dosage: TEXT:UNSPECIFIED
     Route: 061
     Dates: start: 20090501, end: 20090507

REACTIONS (5)
  - APPLICATION SITE DISCOLOURATION [None]
  - APPLICATION SITE ERYTHEMA [None]
  - APPLICATION SITE INFECTION [None]
  - CONDITION AGGRAVATED [None]
  - OFF LABEL USE [None]
